FAERS Safety Report 17565701 (Version 1)
Quarter: 2020Q1

REPORT INFORMATION
  Report Type: Spontaneous
  Country: EE (occurrence: EE)
  Receive Date: 20200320
  Receipt Date: 20200320
  Transmission Date: 20200409
  Serious: Yes (Death)
  Sender: FDA-Public Use
  Company Number: EE-FRESENIUS KABI-FK202002783

PATIENT
  Age: 67 Year
  Sex: Male

DRUGS (18)
  1. IRINOTECAN (MANUFACTURER UNKNOWN) [Suspect]
     Active Substance: IRINOTECAN
     Indication: COLORECTAL CANCER STAGE IV
     Route: 065
  2. OMEPRAZOLE. [Suspect]
     Active Substance: OMEPRAZOLE
     Indication: GASTROOESOPHAGEAL REFLUX DISEASE
     Route: 065
  3. TAMSULOSIN [Suspect]
     Active Substance: TAMSULOSIN
     Indication: BENIGN PROSTATIC HYPERPLASIA
     Route: 065
  4. IRINOTECAN [Suspect]
     Active Substance: IRINOTECAN
     Indication: COLORECTAL CANCER
     Route: 065
     Dates: start: 201808
  5. OXYGEN. [Suspect]
     Active Substance: OXYGEN
     Indication: DYSPNOEA
     Route: 065
     Dates: start: 201908, end: 201909
  6. REGORAFENIB. [Suspect]
     Active Substance: REGORAFENIB
     Indication: COLORECTAL CANCER STAGE IV
     Route: 065
     Dates: start: 201901, end: 201904
  7. CAPECITABINE. [Suspect]
     Active Substance: CAPECITABINE
     Indication: COLON CANCER STAGE III
     Route: 065
     Dates: end: 201807
  8. PEMBROLIZUMAB. [Suspect]
     Active Substance: PEMBROLIZUMAB
     Indication: PRODUCT USED FOR UNKNOWN INDICATION
     Route: 065
     Dates: start: 201907
  9. OXALIPLATIN (MANUFACTURER UNKNOWN) [Suspect]
     Active Substance: OXALIPLATIN
     Indication: COLON CANCER STAGE III
     Route: 065
  10. OXALIPLATIN. [Suspect]
     Active Substance: OXALIPLATIN
     Indication: COLON CANCER STAGE III
     Route: 065
     Dates: end: 201807
  11. TRIFLURIDINE. [Suspect]
     Active Substance: TRIFLURIDINE
     Indication: COLORECTAL CANCER STAGE IV
     Route: 065
     Dates: start: 201904
  12. CAPECITABINE. [Suspect]
     Active Substance: CAPECITABINE
     Indication: COLORECTAL CANCER STAGE IV
     Route: 065
     Dates: start: 201808
  13. FLUOROURACIL SODIUM [Suspect]
     Active Substance: FLUOROURACIL SODIUM
     Indication: COLON CANCER STAGE III
     Route: 065
  14. BEVACIZUMAB. [Suspect]
     Active Substance: BEVACIZUMAB
     Indication: COLORECTAL CANCER STAGE IV
     Route: 065
     Dates: start: 201808
  15. ENOXAPARIN [Suspect]
     Active Substance: ENOXAPARIN
     Indication: MESENTERIC VEIN THROMBOSIS
     Route: 065
     Dates: start: 201810, end: 201810
  16. BEVACIZUMAB. [Suspect]
     Active Substance: BEVACIZUMAB
     Indication: COLORECTAL CANCER STAGE IV
     Route: 065
  17. TIPIRACIL [Suspect]
     Active Substance: TIPIRACIL
     Indication: COLORECTAL CANCER STAGE IV
     Route: 065
     Dates: start: 201904
  18. METHYLPREDNISOLONE. [Suspect]
     Active Substance: METHYLPREDNISOLONE
     Indication: NEGATIVE THOUGHTS
     Dosage: 1 MG/KG DOSE INCREASED TO 1.5 MG/KG. THEN INCREASED TO 2 MG/KG
     Route: 042

REACTIONS (10)
  - Mesenteric vein thrombosis [Unknown]
  - Lymphadenopathy [Unknown]
  - Tumour marker increased [Unknown]
  - Neutropenia [Unknown]
  - Mesenteric fibrosis [Unknown]
  - Chest pain [Unknown]
  - Metastasis [Unknown]
  - Disease progression [Unknown]
  - Leukopenia [Unknown]
  - Hepatic cyst [Unknown]
